FAERS Safety Report 10289039 (Version 4)
Quarter: 2014Q4

REPORT INFORMATION
  Report Type: Spontaneous
  Country: JP (occurrence: JP)
  Receive Date: 20140710
  Receipt Date: 20141212
  Transmission Date: 20150528
  Serious: Yes (Hospitalization)
  Sender: FDA-Public Use
  Company Number: JP-MYLANLABS-2014S1015760

PATIENT

DRUGS (8)
  1. BAYASPIRIN [Concomitant]
     Active Substance: ASPIRIN
     Indication: ANGINA PECTORIS
     Dosage: 1 DF, QD
     Route: 048
     Dates: start: 20071113
  2. RANITIDINE HYDROCHLORIDE. [Concomitant]
     Active Substance: RANITIDINE HYDROCHLORIDE
     Indication: GASTRITIS
     Dosage: 2 DF, BID
     Route: 048
     Dates: start: 20071113
  3. PLAVIX [Concomitant]
     Active Substance: CLOPIDOGREL BISULFATE
     Indication: ANGINA PECTORIS
     Dosage: 1 DF, QD
     Route: 048
     Dates: start: 20121225
  4. CARBOPLATIN INJECTION 50 MG ^NK^ [Suspect]
     Active Substance: CARBOPLATIN
     Indication: LUNG NEOPLASM MALIGNANT
     Dosage: 50 MG, UNK
     Route: 041
     Dates: start: 20140617, end: 20140617
  5. ENALAPRIL MALEATE. [Concomitant]
     Active Substance: ENALAPRIL MALEATE
     Indication: HYPERTENSION
     Dosage: 1 DF, QD
     Route: 048
     Dates: start: 20071113
  6. ISOSORBIDE DINITRATE. [Concomitant]
     Active Substance: ISOSORBIDE DINITRATE
     Indication: ANGINA PECTORIS
     Dosage: 1 DF, QD
     Route: 048
     Dates: start: 20121225
  7. PACLITAXEL. [Suspect]
     Active Substance: PACLITAXEL
     Indication: LUNG NEOPLASM MALIGNANT
     Dosage: ??
     Route: 041
     Dates: start: 20140617, end: 20140617
  8. HERBESSER [Concomitant]
     Active Substance: DILTIAZEM HYDROCHLORIDE
     Indication: ANGINA PECTORIS
     Dosage: 1 DF, QD
     Route: 048
     Dates: start: 20071113

REACTIONS (1)
  - Pneumonia [Recovered/Resolved]

NARRATIVE: CASE EVENT DATE: 20140619
